FAERS Safety Report 17020313 (Version 1)
Quarter: 2019Q4

REPORT INFORMATION
  Report Type: Spontaneous
  Country: CA (occurrence: CA)
  Receive Date: 20191112
  Receipt Date: 20191112
  Transmission Date: 20200122
  Serious: No
  Sender: FDA-Public Use
  Company Number: CA-BEH-2019109313

PATIENT
  Age: 65 Year
  Sex: Female

DRUGS (1)
  1. ALBUREX [Suspect]
     Active Substance: ALBUMIN HUMAN
     Indication: PRODUCT USED FOR UNKNOWN INDICATION
     Dosage: 66.2 MILLILITER, FRACTION 3/4
     Route: 065
     Dates: start: 20190922, end: 20190922

REACTIONS (1)
  - Febrile nonhaemolytic transfusion reaction [Recovered/Resolved]

NARRATIVE: CASE EVENT DATE: 20190922
